FAERS Safety Report 13698243 (Version 4)
Quarter: 2018Q1

REPORT INFORMATION
  Report Type: Spontaneous
  Country: US (occurrence: US)
  Receive Date: 20170628
  Receipt Date: 20180115
  Transmission Date: 20180508
  Serious: Yes (Other)
  Sender: FDA-Public Use
  Company Number: US-PFIZER INC-2017278077

PATIENT
  Age: 68 Year
  Sex: Female

DRUGS (2)
  1. IBRANCE [Suspect]
     Active Substance: PALBOCICLIB
     Indication: BREAST CANCER FEMALE
     Dosage: 125 MG, CYCLIC (ONCE DAILY FOR 21 DAYS, THEN OFF FOR 7 DAYS PER CYCLE)
     Route: 048
     Dates: start: 20170525
  2. IBRANCE [Suspect]
     Active Substance: PALBOCICLIB
     Dosage: 100 MG CYCLIC (ONCE DAILY FOR 21 DAYS, THEN OFF FOR 7 DAYS PER CYCLE)
     Route: 048

REACTIONS (5)
  - Increased tendency to bruise [Unknown]
  - Drug dose omission [Unknown]
  - White blood cell count decreased [Unknown]
  - Lung infection [Unknown]
  - Confusional state [Unknown]

NARRATIVE: CASE EVENT DATE: 2017
